FAERS Safety Report 4814378-8 (Version None)
Quarter: 2005Q4

REPORT INFORMATION
  Report Type: 
  Country: None (occurrence: None)
  Receive Date: 20051028
  Receipt Date: 20050815
  Transmission Date: 20060501
  Serious: No
  Sender: FDA-Public Use
  Company Number: US-GLAXOSMITHKLINE-A0570273A

PATIENT
  Age: 82 Year
  Sex: Female

DRUGS (11)
  1. ADVAIR DISKUS 100/50 [Suspect]
     Indication: CHRONIC OBSTRUCTIVE PULMONARY DISEASE
     Dosage: 1BLS TWICE PER DAY
     Route: 055
  2. NOVOLOG [Concomitant]
     Route: 065
  3. KETEK [Concomitant]
  4. KENALOG [Concomitant]
     Route: 065
  5. TYLENOL (CAPLET) [Concomitant]
  6. VICODIN [Concomitant]
  7. NORVASC [Concomitant]
  8. LOTENSIN [Concomitant]
  9. HYDROCHLOROTHIAZIDE [Concomitant]
  10. ACTOS [Concomitant]
  11. AMARYL [Concomitant]

REACTIONS (8)
  - ARTHRITIS [None]
  - BUCCAL MUCOSAL ROUGHENING [None]
  - COUGH [None]
  - DIABETES MELLITUS INADEQUATE CONTROL [None]
  - DRY THROAT [None]
  - DYSPHAGIA [None]
  - INFECTION [None]
  - ORAL MUCOSAL DISORDER [None]
